FAERS Safety Report 4943580-X (Version None)
Quarter: 2006Q1

REPORT INFORMATION
  Report Type: 
  Country: None (occurrence: None)
  Receive Date: 20060310
  Receipt Date: 20060224
  Transmission Date: 20060701
  Serious: Yes (Hospitalization)
  Sender: FDA-Public Use
  Company Number: B040424A

PATIENT
  Age: 53 Year
  Sex: Female
  Weight: 51.8915 kg

DRUGS (8)
  1. ADEFOVIR DIPIVOXIL TABLET (ADEFOVIR DIPIVOXIL) [Suspect]
     Indication: HEPATITIS B
     Dosage: 10 MG/ PER DAY/ ORAL
     Route: 048
     Dates: start: 20051125
  2. EPIVIR-HBV [Suspect]
     Indication: HEPATITIS B
     Dosage: 100 MG / PER DAY/ ORAL
     Route: 048
     Dates: start: 20010701
  3. TEPRENONE [Concomitant]
  4. OMEPRAZOLE [Concomitant]
  5. TACROLIMUS [Concomitant]
  6. EBASTINE [Concomitant]
  7. STRONG NEO MINOPHAGEN C [Concomitant]
  8. TACROLIMUS [Concomitant]

REACTIONS (6)
  - COMPLICATIONS OF TRANSPLANT SURGERY [None]
  - DRUG ERUPTION [None]
  - GRAFT VERSUS HOST DISEASE [None]
  - PRURITUS [None]
  - RASH [None]
  - STEM CELL TRANSPLANT [None]
